FAERS Safety Report 7068917-X (Version None)
Quarter: 2010Q4

REPORT INFORMATION
  Report Type: 
  Country: None (occurrence: None)
  Receive Date: 20101020
  Receipt Date: 20101012
  Transmission Date: 20110411
  Serious: Yes (Death, Other)
  Sender: FDA-Public Use
  Company Number: 2010US004276

PATIENT
  Age: 77 Year
  Sex: Male
  Weight: 40 kg

DRUGS (11)
  1. AMBISOME [Suspect]
     Indication: BRONCHOPULMONARY ASPERGILLOSIS
     Dosage: 100 MG, UID/QD, IV NOS
     Route: 042
     Dates: start: 20100917, end: 20100920
  2. FUNGUARD (MICAFUNGIN) INJECTION [Suspect]
     Indication: BRONCHOPULMONARY ASPERGILLOSIS
     Dosage: 150 MG, UID/QD
     Route: 065
  3. GANCICLOVIR [Concomitant]
  4. METRONIDAZOLE [Concomitant]
  5. ASPIRIN [Concomitant]
  6. BACTAR (SULFAMETHOXAZOLE) [Concomitant]
  7. FUNGIZONE [Concomitant]
  8. MUCODYNE (CARBOCISTEINE) [Concomitant]
  9. RABEPRAZOLE SODIUM [Concomitant]
  10. TANATRIL (IMIDAPRIL HYDROCHLORIDE) [Concomitant]
  11. PREDNISOLONE [Concomitant]

REACTIONS (8)
  - CARDIAC ARREST [None]
  - DEHYDRATION [None]
  - DIARRHOEA [None]
  - DRUG INEFFECTIVE [None]
  - METABOLIC ACIDOSIS [None]
  - RENAL FAILURE ACUTE [None]
  - RESPIRATORY ARREST [None]
  - SUPRAVENTRICULAR TACHYCARDIA [None]
